FAERS Safety Report 5376285-4 (Version None)
Quarter: 2007Q2

REPORT INFORMATION
  Report Type: 
  Country: None (occurrence: None)
  Receive Date: 20070627
  Receipt Date: 20070627
  Transmission Date: 20071010
  Serious: No
  Sender: FDA-Public Use
  Company Number: None

PATIENT
  Age: 38 Year
  Sex: Male
  Weight: 85.3 kg

DRUGS (4)
  1. FLUORESCITE [Suspect]
     Indication: ANGIOGRAM
     Dosage: 5ML (500 MG) IV
     Route: 042
     Dates: start: 20061012
  2. GABAPENTIN [Concomitant]
  3. AMITRIPTYLINE HCL [Concomitant]
  4. LORAZEPAM [Concomitant]

REACTIONS (1)
  - URTICARIA [None]
